FAERS Safety Report 25455048 (Version 1)
Quarter: 2025Q2

REPORT INFORMATION
  Report Type: Report from Study
  Country: IT (occurrence: IT)
  Receive Date: 20250619
  Receipt Date: 20250619
  Transmission Date: 20250716
  Serious: Yes (Other)
  Sender: UCB
  Company Number: IT-UCBSA-2025035750

PATIENT
  Age: 14 Year
  Sex: Male

DRUGS (1)
  1. FENFLURAMINE HYDROCHLORIDE [Suspect]
     Active Substance: FENFLURAMINE HYDROCHLORIDE
     Indication: Severe myoclonic epilepsy of infancy
     Dosage: 5 ML IN THE MORNING AND 6 ML IN THE EVENING
     Dates: start: 2023

REACTIONS (3)
  - Seizure [Unknown]
  - Therapeutic product effect incomplete [Unknown]
  - Product use issue [Unknown]
